FAERS Safety Report 13809673 (Version 2)
Quarter: 2018Q1

REPORT INFORMATION
  Report Type: Spontaneous
  Country: JP (occurrence: JP)
  Receive Date: 20170728
  Receipt Date: 20180206
  Transmission Date: 20180508
  Serious: Yes (Death, Other)
  Sender: FDA-Public Use
  Company Number: JP-ELI_LILLY_AND_COMPANY-JP201707010434

PATIENT
  Sex: Male
  Weight: 54 kg

DRUGS (4)
  1. 5 FU [Concomitant]
     Active Substance: FLUOROURACIL
     Indication: COLON CANCER
     Route: 042
  2. LEVOFOLINATE CALCIUM [Concomitant]
     Active Substance: LEVOLEUCOVORIN CALCIUM
     Indication: COLON CANCER
     Route: 042
  3. IRINOTECAN [Concomitant]
     Active Substance: IRINOTECAN
     Indication: COLON CANCER
     Route: 042
  4. CYRAMZA [Suspect]
     Active Substance: RAMUCIRUMAB
     Indication: COLON CANCER
     Route: 042

REACTIONS (2)
  - Gastrointestinal perforation [Fatal]
  - Peritonitis [Unknown]
